FAERS Safety Report 8271178-7 (Version None)
Quarter: 2012Q2

REPORT INFORMATION
  Report Type: 
  Country: None (occurrence: None)
  Receive Date: 20120406
  Receipt Date: 20120329
  Transmission Date: 20120825
  Serious: Yes (Disabling)
  Sender: FDA-Public Use
  Company Number: 1244232

PATIENT
  Age: 50 Year
  Sex: Male

DRUGS (5)
  1. ONDANSETRON [Concomitant]
  2. CAPECITABINE [Suspect]
     Indication: COLON CANCER METASTATIC
     Dosage: 100 MG/M^2, ORAL
     Route: 048
  3. OXALIPLATIN [Suspect]
     Indication: COLON CANCER METASTATIC
     Dosage: 130 MG/M^2, INTRAVENOUS (NOT OTHERWISE SPECIFIED)
     Route: 042
  4. DEXAMETHASONE [Concomitant]
  5. (BEVACIZUMAB) [Suspect]
     Indication: COLON CANCER METASTATIC
     Dosage: 7.5 MG/KG, INTRAVENOUS (NOT OTHERWISE SPECIFIED)
     Route: 042

REACTIONS (6)
  - RETINAL VASCULAR DISORDER [None]
  - BLINDNESS UNILATERAL [None]
  - MACULAR OEDEMA [None]
  - RETINAL VEIN THROMBOSIS [None]
  - PAPILLOEDEMA [None]
  - RETINAL HAEMORRHAGE [None]
